FAERS Safety Report 12261658 (Version 1)
Quarter: 2016Q2

REPORT INFORMATION
  Report Type: Spontaneous
  Country: SE (occurrence: SE)
  Receive Date: 20160413
  Receipt Date: 20160413
  Transmission Date: 20160815
  Serious: Yes (Other)
  Sender: FDA-Public Use
  Company Number: SE-TEVA-649781ACC

PATIENT
  Age: 71 Year
  Sex: Female

DRUGS (6)
  1. KALCIPOS-D FORTE 500 MG/800 IE FILM COATED TABLETT [Concomitant]
     Active Substance: CALCIUM CARBONATE\CHOLECALCIFEROL
     Dates: start: 20160212
  2. PULMICORT TURBUHALER [Suspect]
     Active Substance: BUDESONIDE
  3. WARFARIN 2,5 MG TABLET [Concomitant]
     Active Substance: WARFARIN
  4. METOPROLOL SANDOZ 25 MG DEPOTTABLETT [Concomitant]
  5. DURBIS RETARD 250 MG DEPOTTABLETT [Concomitant]
  6. ALENDRONAT [Suspect]
     Active Substance: ALENDRONATE SODIUM
     Indication: OSTEOPOROSIS
     Route: 048
     Dates: start: 20160212, end: 20160213

REACTIONS (5)
  - Headache [Recovered/Resolved]
  - Myalgia [Recovered/Resolved]
  - Abdominal pain [Recovered/Resolved]
  - Influenza like illness [Recovered/Resolved]
  - Chest pain [Recovered/Resolved]

NARRATIVE: CASE EVENT DATE: 201602
